FAERS Safety Report 25357513 (Version 1)
Quarter: 2025Q2

REPORT INFORMATION
  Report Type: Spontaneous
  Country: US (occurrence: US)
  Receive Date: 20250526
  Receipt Date: 20250526
  Transmission Date: 20250716
  Serious: No
  Sender: ACCORD
  Company Number: US-Accord-457081

PATIENT
  Sex: Female

DRUGS (3)
  1. METHOTREXATE [Suspect]
     Active Substance: METHOTREXATE
     Indication: Product used for unknown indication
  2. ABATACEPT [Concomitant]
     Active Substance: ABATACEPT
  3. HUMIRA [Concomitant]
     Active Substance: ADALIMUMAB

REACTIONS (3)
  - Urticaria [Unknown]
  - Eosinophilia [Unknown]
  - Drug ineffective [Unknown]
